FAERS Safety Report 14491985 (Version 2)
Quarter: 2018Q1

REPORT INFORMATION
  Report Type: Report from Study
  Country: US (occurrence: US)
  Receive Date: 20180206
  Receipt Date: 20180227
  Transmission Date: 20180509
  Serious: Yes (Hospitalization)
  Sender: FDA-Public Use
  Company Number: US-B.I. PHARMACEUTICALS,INC./RIDGEFIELD-2017-BI-053664

PATIENT
  Age: 74 Year
  Sex: Male

DRUGS (3)
  1. OFEV [Suspect]
     Active Substance: NINTEDANIB
     Route: 048
     Dates: start: 20170807
  2. ELIQUIS [Concomitant]
     Active Substance: APIXABAN
     Indication: PRODUCT USED FOR UNKNOWN INDICATION
     Route: 065
  3. OFEV [Suspect]
     Active Substance: NINTEDANIB
     Indication: IDIOPATHIC PULMONARY FIBROSIS
     Route: 048
     Dates: start: 20170804

REACTIONS (17)
  - Internal haemorrhage [Unknown]
  - Sinus operation [Unknown]
  - Dysstasia [Unknown]
  - Oxygen saturation decreased [Unknown]
  - Chest pain [Unknown]
  - Blood pressure decreased [Unknown]
  - Dyspnoea [Unknown]
  - Productive cough [Unknown]
  - Headache [Unknown]
  - Hypotension [Recovered/Resolved]
  - Blood glucose decreased [Unknown]
  - Dyspnoea exertional [Unknown]
  - Asthenia [Not Recovered/Not Resolved]
  - Secretion discharge [Unknown]
  - Dizziness [Unknown]
  - Cough [Unknown]
  - Feeding disorder [Unknown]

NARRATIVE: CASE EVENT DATE: 20171201
